FAERS Safety Report 15975177 (Version 3)
Quarter: 2022Q4

REPORT INFORMATION
  Report Type: Report from Study
  Country: US (occurrence: US)
  Receive Date: 20190218
  Receipt Date: 20221020
  Transmission Date: 20230112
  Serious: No
  Sender: FDA-Public Use
  Company Number: US-CELLTRION INC.-2018US024167

PATIENT

DRUGS (25)
  1. INFLECTRA [Suspect]
     Active Substance: INFLIXIMAB-DYYB
     Indication: Product used for unknown indication
     Dosage: 500 MG, EVERY 6 WEEKS
     Route: 042
     Dates: start: 20180522, end: 20180522
  2. INFLECTRA [Suspect]
     Active Substance: INFLIXIMAB-DYYB
     Dosage: 500 MG, EVERY 6 WEEKS
     Route: 042
     Dates: start: 20180831, end: 20180831
  3. GABAPENTIN [Concomitant]
     Active Substance: GABAPENTIN
     Dosage: 300 MG, TID
     Route: 048
     Dates: start: 20150128
  4. OMEPRAZOLE [Concomitant]
     Active Substance: OMEPRAZOLE
     Dosage: 40 MG, 1 CAPSULE/DAY
     Route: 048
     Dates: start: 20150128
  5. PENTASA [Concomitant]
     Active Substance: MESALAMINE
     Dosage: 500 MG, 2 CAPSULES, 4 TIMES A DAY
     Route: 048
     Dates: start: 20150128
  6. PHAZYME                            /00164001/ [Concomitant]
     Dosage: 180 MG, DAILY, 1 TIME
     Route: 048
     Dates: start: 20150128
  7. WELLBUTRIN [Concomitant]
     Active Substance: BUPROPION HYDROCHLORIDE
     Dosage: 150 MG
     Route: 048
     Dates: start: 20150128
  8. ZOLOFT [Concomitant]
     Active Substance: SERTRALINE HYDROCHLORIDE
     Dosage: 50 MG, QAM
     Route: 048
     Dates: start: 20150128
  9. RELACORE [Concomitant]
     Dosage: 3 DF, IN THE MORNING
     Route: 048
     Dates: start: 20150424
  10. PROMETRIUM [Concomitant]
     Active Substance: PROGESTERONE
     Dosage: 100 MG
     Route: 048
     Dates: start: 20150424
  11. METANX [Concomitant]
     Active Substance: LEVOMEFOLATE CALCIUM\METHYLCOBALAMIN\PYRIDOXAL PHOSPHATE ANHYDROUS
     Dosage: 3 UNK, 3 PILLS , 1 CAPSULE EVERY OTHER DAY
     Route: 048
     Dates: start: 20150424
  12. BUDESONIDE [Concomitant]
     Active Substance: BUDESONIDE
     Dosage: 3 MG, 3 CAPSULES ONCE PER DAY
     Route: 048
     Dates: start: 20170215, end: 20171020
  13. TYLENOL                            /00020001/ [Concomitant]
     Dosage: 3Q4H
     Route: 048
     Dates: start: 20170811, end: 20171201
  14. FLAGYL [Concomitant]
     Active Substance: METRONIDAZOLE\METRONIDAZOLE HYDROCHLORIDE
     Dosage: 300 MG, TID
     Route: 048
     Dates: start: 20171020, end: 20171027
  15. RANITIDINE HYDROCHLORIDE [Concomitant]
     Active Substance: RANITIDINE HYDROCHLORIDE
     Dosage: 300 MG, 1 TABLET
     Route: 048
     Dates: start: 20180112
  16. LINZESS [Concomitant]
     Active Substance: LINACLOTIDE
     Dosage: 290 MCG, 1 CAPSULE/DAY
     Route: 048
     Dates: start: 20180209, end: 201803
  17. VITAMINS [Concomitant]
     Active Substance: VITAMINS
     Dosage: UNK
     Route: 048
  18. ESTRADIOL [Concomitant]
     Active Substance: ESTRADIOL
     Dosage: 0.05 MG, 24 HOURS
     Route: 048
     Dates: start: 20150424
  19. ADVIL                              /00044201/ [Concomitant]
     Dosage: 3 PILLS , 4 TIMES A DAY
     Route: 048
     Dates: start: 20150424
  20. APRISO [Concomitant]
     Active Substance: MESALAMINE
     Dosage: 0.375 G, 4 CAPSULES,
  21. HUMIRA [Concomitant]
     Active Substance: ADALIMUMAB
     Dosage: 40 MG, EVERY 2 WEEKS
     Route: 048
     Dates: start: 20160531, end: 20160811
  22. METAMUCIL                          /00029101/ [Concomitant]
     Dosage: 0.52 G, 2 CAPS, POWDER
     Route: 048
     Dates: start: 20160811, end: 20170125
  23. FINASTERIDE [Concomitant]
     Active Substance: FINASTERIDE
     Dosage: 5 MG, QD
     Dates: start: 20170125, end: 20170215
  24. PREDNISONE [Concomitant]
     Active Substance: PREDNISONE
     Dosage: 10 MG, 2 TABLETS ONCE PERDAY
     Route: 048
     Dates: start: 20161229, end: 20170407
  25. PREDNISONE [Concomitant]
     Active Substance: PREDNISONE
     Dosage: 10 MG, 3 TABLETS ONCE PER DAY
     Route: 048
     Dates: start: 20180413

REACTIONS (1)
  - Drug ineffective [Unknown]

NARRATIVE: CASE EVENT DATE: 20180831
